FAERS Safety Report 18491069 (Version 1)
Quarter: 2020Q4

REPORT INFORMATION
  Report Type: Spontaneous
  Country: US (occurrence: US)
  Receive Date: 20201111
  Receipt Date: 20201111
  Transmission Date: 20210114
  Serious: No
  Sender: FDA-Public Use
  Company Number: US-PERRIGO-19US012923

PATIENT
  Age: 68 Year
  Sex: Female
  Weight: 102.49 kg

DRUGS (3)
  1. LOSARTIN [Concomitant]
     Active Substance: LOSARTAN
     Indication: BLOOD PRESSURE ABNORMAL
     Dosage: UNK
     Route: 065
  2. LEVOTHYROXIN [Concomitant]
     Active Substance: LEVOTHYROXINE
     Indication: THYROID DISORDER
     Dosage: UNK
     Route: 065
  3. FAMOTIDINE. [Suspect]
     Active Substance: FAMOTIDINE
     Indication: GASTROOESOPHAGEAL REFLUX DISEASE
     Dosage: 20 MG, QD
     Route: 048
     Dates: start: 20191021, end: 20191028

REACTIONS (1)
  - Drug ineffective [Unknown]

NARRATIVE: CASE EVENT DATE: 20191021
